FAERS Safety Report 17941172 (Version 2)
Quarter: 2020Q3

REPORT INFORMATION
  Report Type: Spontaneous
  Country: IT (occurrence: IT)
  Receive Date: 20200624
  Receipt Date: 20200721
  Transmission Date: 20201103
  Serious: Yes (Death)
  Sender: FDA-Public Use
  Company Number: IT-BAUSCH-BL-2020-017704

PATIENT
  Sex: Female

DRUGS (4)
  1. MORPHINE [Suspect]
     Active Substance: MORPHINE
     Indication: EUTHANASIA
     Route: 040
  2. PROPOFOL. [Suspect]
     Active Substance: PROPOFOL
     Indication: EUTHANASIA
     Route: 040
  3. MIDAZOLAM. [Suspect]
     Active Substance: MIDAZOLAM
     Indication: EUTHANASIA
     Route: 040
  4. DIAZEPAM. [Suspect]
     Active Substance: DIAZEPAM
     Indication: EUTHANASIA
     Route: 040

REACTIONS (1)
  - Poisoning deliberate [Fatal]

NARRATIVE: CASE EVENT DATE: 20151107
